FAERS Safety Report 5476957-7 (Version None)
Quarter: 2008Q1

REPORT INFORMATION
  Report Type: 
  Country: None (occurrence: None)
  Receive Date: 20071002
  Receipt Date: 20071002
  Transmission Date: 20080703
  Serious: No
  Sender: FDA-Public Use
  Company Number: None

PATIENT
  Age: 59 Year
  Sex: Female
  Weight: 64.4108 kg

DRUGS (1)
  1. PYRIDOXINE HCL [Suspect]
     Indication: FOLATE DEFICIENCY
     Dosage: 1 TABLET DAILY PO
     Route: 048
     Dates: start: 20070928, end: 20070930

REACTIONS (3)
  - BALANCE DISORDER [None]
  - DISORIENTATION [None]
  - DIZZINESS [None]
